APPROVED DRUG PRODUCT: CLINDAMYCIN PHOSPHATE IN 0.9% SODIUM CHLORIDE
Active Ingredient: CLINDAMYCIN PHOSPHATE
Strength: EQ 600MG BASE/50ML (EQ 12MG BASE/ML)
Dosage Form/Route: SOLUTION;INTRAVENOUS
Application: N208083 | Product #002
Applicant: BAXTER HEALTHCARE CORP
Approved: Apr 20, 2017 | RLD: Yes | RS: Yes | Type: RX